FAERS Safety Report 18501515 (Version 4)
Quarter: 2020Q4

REPORT INFORMATION
  Report Type: Spontaneous
  Country: US (occurrence: US)
  Receive Date: 20201113
  Receipt Date: 20201228
  Transmission Date: 20210114
  Serious: Yes (Other)
  Sender: FDA-Public Use
  Company Number: US-PFIZER INC-2020429266

PATIENT

DRUGS (1)
  1. ROBITUSSIN LINGERING COLD LONG-ACTING COUGH [Suspect]
     Active Substance: DEXTROMETHORPHAN HYDROBROMIDE
     Dosage: UNK

REACTIONS (5)
  - Feeling abnormal [Unknown]
  - Drug abuse [Unknown]
  - Autoscopy [Unknown]
  - Paraesthesia [Unknown]
  - Photopsia [Unknown]
